FAERS Safety Report 10915116 (Version 4)
Quarter: 2015Q2

REPORT INFORMATION
  Report Type: Spontaneous
  Country: US (occurrence: US)
  Receive Date: 20150315
  Receipt Date: 20150416
  Transmission Date: 20150821
  Serious: No
  Sender: FDA-Public Use
  Company Number: US-009507513-1503USA005684

PATIENT
  Age: 21 Year
  Sex: Female
  Weight: 136.96 kg

DRUGS (1)
  1. NEXPLANON [Suspect]
     Active Substance: ETONOGESTREL
     Dosage: 1 ROD/EVERY 3 YEARS
     Route: 059
     Dates: start: 20140702

REACTIONS (3)
  - Weight increased [Unknown]
  - Medical device complication [Not Recovered/Not Resolved]
  - Device difficult to use [Not Recovered/Not Resolved]

NARRATIVE: CASE EVENT DATE: 20150121
